FAERS Safety Report 5528826-1 (Version None)
Quarter: 2007Q4

REPORT INFORMATION
  Report Type: 
  Country: None (occurrence: None)
  Receive Date: 20071119
  Receipt Date: 20070807
  Transmission Date: 20080405
  Serious: No
  Sender: FDA-Public Use
  Company Number: TPA2007A01567

PATIENT
  Age: 62 Year
  Sex: Female
  Weight: 57.6068 kg

DRUGS (5)
  1. ROZEREM [Suspect]
     Indication: INSOMNIA
     Dosage: 8 MG, HS, PER ORAL
     Route: 048
     Dates: start: 20070201, end: 20070201
  2. VYTORIN [Concomitant]
  3. CYMBALTA [Concomitant]
  4. TRIAMTERENE (TRIAMTERENE) [Concomitant]
  5. BENTYL [Concomitant]

REACTIONS (1)
  - INITIAL INSOMNIA [None]
